FAERS Safety Report 11625340 (Version 1)
Quarter: 2015Q4

REPORT INFORMATION
  Report Type: Spontaneous
  Country: US (occurrence: US)
  Receive Date: 20151013
  Receipt Date: 20151013
  Transmission Date: 20160304
  Serious: Yes (Other)
  Sender: FDA-Public Use
  Company Number: PHHY2015US121727

PATIENT
  Age: 16 Year
  Sex: Male

DRUGS (4)
  1. VERORAB [Suspect]
     Active Substance: RABIES VACCINE
     Dosage: UNK
     Route: 030
  2. DOXYCYCLINE. [Suspect]
     Active Substance: DOXYCYCLINE
     Indication: ANIMAL BITE
     Route: 065
  3. VERORAB [Suspect]
     Active Substance: RABIES VACCINE
     Indication: ANIMAL BITE
     Route: 065
  4. RABAVERT [Suspect]
     Active Substance: RABIES VIRUS STRAIN FLURY LEP ANTIGEN (PROPIOLACTONE INACTIVATED)
     Indication: ANIMAL BITE
     Route: 030

REACTIONS (1)
  - Immune thrombocytopenic purpura [Recovered/Resolved]
